FAERS Safety Report 6490353-5 (Version None)
Quarter: 2009Q4

REPORT INFORMATION
  Report Type: 
  Country: None (occurrence: None)
  Receive Date: 20091124
  Receipt Date: 20090626
  Transmission Date: 20100525
  Serious: Yes (Congenital Anomaly)
  Sender: FDA-Public Use
  Company Number: SPV1-2009-01352

PATIENT

DRUGS (3)
  1. CARBATROL [Suspect]
     Dosage: 300 MG, 2X/DAY;BID, TRANSPLACENTAL
     Route: 064
  2. FOLIC ACID [Concomitant]
  3. VITAMINS NOS (VITAMINS NOS) [Concomitant]

REACTIONS (1)
  - HYPOPLASTIC LEFT HEART SYNDROME [None]
